FAERS Safety Report 5914095-7 (Version None)
Quarter: 2008Q4

REPORT INFORMATION
  Report Type: 
  Country: None (occurrence: None)
  Receive Date: 20081009
  Receipt Date: 20080822
  Transmission Date: 20090506
  Serious: Yes (Other)
  Sender: FDA-Public Use
  Company Number: CA-JNJCH-2008021997

PATIENT
  Age: 64 Year
  Sex: Female

DRUGS (1)
  1. BENADRYL TOTAL [Suspect]
     Indication: DRUG USE FOR UNKNOWN INDICATION
     Dosage: TEXT:UNSPECIFIED
     Route: 048

REACTIONS (1)
  - CEREBROVASCULAR ACCIDENT [None]
